FAERS Safety Report 21454567 (Version 3)
Quarter: 2022Q4

REPORT INFORMATION
  Report Type: Spontaneous
  Country: US (occurrence: US)
  Receive Date: 20221013
  Receipt Date: 20221226
  Transmission Date: 20230113
  Serious: No
  Sender: FDA-Public Use
  Company Number: US-BRISTOL-MYERS SQUIBB COMPANY-2022-120206

PATIENT
  Age: 62 Year
  Sex: Male

DRUGS (1)
  1. POMALYST [Suspect]
     Active Substance: POMALIDOMIDE
     Indication: Plasma cell myeloma
     Dosage: EVERY DAY FOR 21 DAYS THEN OFF FOR 7 DAYS, THEN REPEAT.
     Route: 048
     Dates: start: 20220622

REACTIONS (9)
  - Nasopharyngitis [Recovered/Resolved]
  - Back pain [Not Recovered/Not Resolved]
  - Peripheral swelling [Not Recovered/Not Resolved]
  - Infection [Recovered/Resolved]
  - Muscle tightness [Unknown]
  - Tremor [Unknown]
  - Pain [Unknown]
  - Fatigue [Unknown]
  - Constipation [Unknown]
